FAERS Safety Report 10923840 (Version 4)
Quarter: 2015Q2

REPORT INFORMATION
  Report Type: Spontaneous
  Country: GB (occurrence: GB)
  Receive Date: 20150318
  Receipt Date: 20150618
  Transmission Date: 20150821
  Serious: Yes (Death, Hospitalization)
  Sender: FDA-Public Use
  Company Number: GB-ACCORD-029171

PATIENT
  Age: 72 Year
  Sex: Male
  Weight: 82.3 kg

DRUGS (13)
  1. METOCLOPRAMIDE. [Concomitant]
     Active Substance: METOCLOPRAMIDE
  2. PARACETAMOL [Concomitant]
     Active Substance: ACETAMINOPHEN
  3. AMLODIPINE [Concomitant]
     Active Substance: AMLODIPINE BESYLATE
  4. FENTANYL. [Concomitant]
     Active Substance: FENTANYL
  5. LEVOMEPROMAZINE [Concomitant]
     Active Substance: LEVOMEPROMAZINE
  6. MACROGOL/MACROGOL STEARATE [Concomitant]
  7. CARBOPLATIN. [Suspect]
     Active Substance: CARBOPLATIN
     Indication: BLADDER CANCER STAGE III
     Route: 042
     Dates: start: 20150210, end: 20150210
  8. GRANISETRON [Concomitant]
     Active Substance: GRANISETRON
  9. BISACODYL. [Concomitant]
     Active Substance: BISACODYL
  10. GEMZAR [Suspect]
     Active Substance: GEMCITABINE HYDROCHLORIDE
     Indication: BLADDER CANCER STAGE III
     Route: 042
     Dates: start: 20150210, end: 20150210
  11. ALFENTANIL [Concomitant]
     Active Substance: ALFENTANIL
  12. OMEPRAZOLE. [Concomitant]
     Active Substance: OMEPRAZOLE
  13. DEXAMETHASONE. [Concomitant]
     Active Substance: DEXAMETHASONE

REACTIONS (11)
  - Urosepsis [Fatal]
  - Toxicity to various agents [Fatal]
  - Dehydration [Not Recovered/Not Resolved]
  - Renal failure [Fatal]
  - Vomiting [Not Recovered/Not Resolved]
  - Neutropenia [Recovering/Resolving]
  - Pyrexia [Not Recovered/Not Resolved]
  - Nausea [Not Recovered/Not Resolved]
  - Hepatic failure [Fatal]
  - Thrombocytopenia [Recovering/Resolving]
  - Off label use [Unknown]

NARRATIVE: CASE EVENT DATE: 20150211
